FAERS Safety Report 14784197 (Version 6)
Quarter: 2018Q3

REPORT INFORMATION
  Report Type: Other
  Country: GB (occurrence: GB)
  Receive Date: 20180420
  Receipt Date: 20180725
  Transmission Date: 20181010
  Serious: Yes (Other)
  Sender: FDA-Public Use
  Company Number: GB-DIMETHAID UK LIMITED-DIM-001363-2018

PATIENT
  Age: 80 Year
  Sex: Male

DRUGS (3)
  1. VOLTAROL [Suspect]
     Active Substance: DICLOFENAC SODIUM
     Indication: PAIN
     Dosage: UNK
     Route: 065
  2. DICLOFENAC SODIUM. [Suspect]
     Active Substance: DICLOFENAC SODIUM
     Indication: GOUT
     Dosage: UNK
     Route: 065
  3. VOLTAROL [Suspect]
     Active Substance: DICLOFENAC SODIUM
     Indication: GOUT
     Dosage: 3 DF, QD
     Route: 065

REACTIONS (4)
  - Arthropathy [Unknown]
  - Wrong drug administered [Unknown]
  - Product use in unapproved indication [Unknown]
  - Drug ineffective [Unknown]
